FAERS Safety Report 5948051-X (Version None)
Quarter: 2008Q4

REPORT INFORMATION
  Report Type: 
  Country: None (occurrence: None)
  Receive Date: 20081110
  Receipt Date: 20081110
  Transmission Date: 20090506
  Serious: Yes (Hospitalization)
  Sender: FDA-Public Use
  Company Number: None

PATIENT
  Sex: Male
  Weight: 85 kg

DRUGS (2)
  1. PREDNISONE TAB [Suspect]
     Dosage: 40 MG
  2. TAXOTERE [Suspect]
     Dosage: 155 MG

REACTIONS (1)
  - BLOOD GLUCOSE INCREASED [None]
